FAERS Safety Report 9187720 (Version 1)
Quarter: 2013Q1

REPORT INFORMATION
  Report Type: Spontaneous
  Country: US (occurrence: US)
  Receive Date: 20130325
  Receipt Date: 20130325
  Transmission Date: 20140127
  Serious: No
  Sender: FDA-Public Use
  Company Number: US-MYLANLABS-2012S1004443

PATIENT
  Age: 85 Year
  Sex: Female

DRUGS (2)
  1. FENTANYL TRANSDERMAL SYSTEM [Suspect]
     Indication: BACK PAIN
     Dosage: Q 72
     Route: 062
     Dates: start: 2011
  2. OXYCONTIN [Concomitant]
     Indication: BREAKTHROUGH PAIN

REACTIONS (1)
  - Restless legs syndrome [Recovered/Resolved]
